FAERS Safety Report 9417561 (Version 1)
Quarter: 2013Q3

REPORT INFORMATION
  Report Type: Spontaneous
  Country: US (occurrence: None)
  Receive Date: 20130722
  Receipt Date: 20130722
  Transmission Date: 20140515
  Serious: Yes (Life-Threatening, Hospitalization)
  Sender: FDA-Public Use
  Company Number: None

PATIENT
  Sex: Female
  Weight: 58.97 kg

DRUGS (1)
  1. GABAPENTIN [Suspect]
     Indication: VULVOVAGINAL PAIN

REACTIONS (2)
  - Non-Hodgkin^s lymphoma stage IV [None]
  - Contraindication to medical treatment [None]
